FAERS Safety Report 6937621-8 (Version None)
Quarter: 2010Q3

REPORT INFORMATION
  Report Type: 
  Country: None (occurrence: None)
  Receive Date: 20100823
  Receipt Date: 20100823
  Transmission Date: 20110219
  Serious: Yes (Other)
  Sender: FDA-Public Use
  Company Number: None

PATIENT
  Sex: Female
  Weight: 82.5547 kg

DRUGS (4)
  1. CEFAPIME 2GM SAGENT [Suspect]
     Indication: CELLULITIS
     Dosage: 2GM EVERY 12 HOURS IV
     Route: 042
     Dates: start: 20100803, end: 20100818
  2. CEFAPIME 2GM SAGENT [Suspect]
     Indication: POSTOPERATIVE WOUND INFECTION
     Dosage: 2GM EVERY 12 HOURS IV
     Route: 042
     Dates: start: 20100803, end: 20100818
  3. VANCOMYCIN [Suspect]
     Indication: CELLULITIS
     Dosage: 1GM EVERY 12 HOURS IV
     Route: 042
     Dates: start: 20100803, end: 20100818
  4. VANCOMYCIN [Suspect]
     Indication: POSTOPERATIVE WOUND INFECTION
     Dosage: 1GM EVERY 12 HOURS IV
     Route: 042
     Dates: start: 20100803, end: 20100818

REACTIONS (2)
  - MOUTH ULCERATION [None]
  - RASH GENERALISED [None]
